FAERS Safety Report 8420984-4 (Version None)
Quarter: 2012Q2

REPORT INFORMATION
  Report Type: 
  Country: None (occurrence: None)
  Receive Date: 20120608
  Receipt Date: 20120531
  Transmission Date: 20120825
  Serious: Yes (Hospitalization, Other)
  Sender: FDA-Public Use
  Company Number: US-BAYER-2011-072785

PATIENT
  Age: 27 Year
  Sex: Female
  Weight: 90.703 kg

DRUGS (12)
  1. YASMIN [Suspect]
     Indication: POLYCYSTIC OVARIES
     Dosage: UNK
     Dates: start: 20020101, end: 20050901
  2. DROSPIRENONE AND ETHINYL ESTRADIOL [Suspect]
     Indication: CONTRACEPTION
  3. CARDIZEM [Concomitant]
     Indication: BLOOD PRESSURE INCREASED
  4. PREDNISONE [Concomitant]
     Indication: RHEUMATOID ARTHRITIS
     Dosage: UNK
     Dates: start: 20010101
  5. DILTIAZEM [Concomitant]
     Indication: HEART RATE IRREGULAR
     Dosage: UNK
     Dates: start: 20050901
  6. CELEBREX [Concomitant]
     Indication: RHEUMATOID ARTHRITIS
     Dosage: UNK
     Dates: start: 20020101, end: 20110101
  7. METHOTREXATE [Concomitant]
     Indication: RHEUMATOID ARTHRITIS
     Dosage: UNK
     Dates: start: 20040101
  8. PLAQUERIL [Concomitant]
     Indication: RHEUMATOID ARTHRITIS
     Dosage: UNK
     Dates: start: 20040101
  9. BEXTRA [Concomitant]
     Indication: RHEUMATOID ARTHRITIS
     Dosage: UNK
     Dates: start: 20020101
  10. DROSPIRENONE AND ETHINYL ESTRADIOL [Suspect]
     Indication: POLYCYSTIC OVARIES
     Dosage: UNK
     Dates: start: 20080101
  11. YASMIN [Suspect]
     Indication: CONTRACEPTION
  12. OXYGEN [Concomitant]

REACTIONS (12)
  - PULMONARY EMBOLISM [None]
  - DYSPNOEA [None]
  - PALPITATIONS [None]
  - DEEP VEIN THROMBOSIS [None]
  - ANHEDONIA [None]
  - INJURY [None]
  - ANXIETY [None]
  - PAIN [None]
  - POLYCYSTIC OVARIES [None]
  - DEPRESSION [None]
  - MENTAL DISORDER [None]
  - OEDEMA PERIPHERAL [None]
